FAERS Safety Report 13824325 (Version 5)
Quarter: 2023Q4

REPORT INFORMATION
  Report Type: Spontaneous
  Country: GB (occurrence: GB)
  Receive Date: 20170802
  Receipt Date: 20231215
  Transmission Date: 20240110
  Serious: Yes (Other)
  Sender: FDA-Public Use
  Company Number: GB-AUROBINDO-AUR-APL-2017-38014

PATIENT
  Age: 75 Year
  Sex: Male
  Weight: 90 kg

DRUGS (26)
  1. METFORMIN [Suspect]
     Active Substance: METFORMIN HYDROCHLORIDE
     Indication: Diabetes mellitus
     Dosage: UNK
     Route: 065
  2. DICLOFENAC [Suspect]
     Active Substance: DICLOFENAC
     Indication: Arthritis
     Dosage: UNK
     Route: 065
  3. VOLTAROL [Suspect]
     Active Substance: DICLOFENAC SODIUM
     Indication: Arthritis
     Dosage: 1 DOSAGE FORM, 3 TIMES A DAY
     Route: 065
  4. VOLTAROL [Suspect]
     Active Substance: DICLOFENAC SODIUM
     Indication: Gastrointestinal disorder
     Dosage: 2 DOSAGE FORM
     Route: 065
  5. VOLTAROL [Suspect]
     Active Substance: DICLOFENAC SODIUM
     Indication: Musculoskeletal stiffness
     Dosage: 150 MILLIGRAM, ONCE A DAY
     Route: 065
  6. VOLTAROL [Suspect]
     Active Substance: DICLOFENAC SODIUM
     Dosage: 100 MG, QD
     Route: 065
  7. VOLTAROL [Suspect]
     Active Substance: DICLOFENAC SODIUM
     Dosage: 2 DF, UNK
     Route: 065
  8. VOLTAROL [Suspect]
     Active Substance: DICLOFENAC SODIUM
     Dosage: 150 MG, QD
     Route: 065
  9. VOLTAROL [Suspect]
     Active Substance: DICLOFENAC SODIUM
     Dosage: 150 MILLIGRAM, ONCE A DAY
     Route: 065
  10. VOLTAROL [Suspect]
     Active Substance: DICLOFENAC SODIUM
     Dosage: 100 MG, QD
     Route: 065
  11. VOLTAROL [Suspect]
     Active Substance: DICLOFENAC SODIUM
     Dosage: 2 DF, UNK
     Route: 065
  12. VOLTAROL [Suspect]
     Active Substance: DICLOFENAC SODIUM
     Dosage: 150 MG, QD
     Route: 065
  13. VOLTAROL [Suspect]
     Active Substance: DICLOFENAC SODIUM
     Dosage: 150 MILLIGRAM, ONCE A DAY
     Route: 065
  14. VOLTAROL [Suspect]
     Active Substance: DICLOFENAC SODIUM
     Dosage: 2 DF, UNK
     Route: 065
  15. VOLTAROL [Suspect]
     Active Substance: DICLOFENAC SODIUM
     Dosage: 150 MG, QD
     Route: 065
  16. VOLTAROL [Suspect]
     Active Substance: DICLOFENAC SODIUM
     Dosage: 100 MG, QD
     Route: 065
  17. VOLTAROL [Suspect]
     Active Substance: DICLOFENAC SODIUM
     Dosage: 150 MILLIGRAM, ONCE A DAY
     Route: 065
  18. VOLTAROL [Suspect]
     Active Substance: DICLOFENAC SODIUM
     Indication: Arthritis
     Dosage: 1 DOSAGE FORM, 3 TIMES A DAY
     Route: 065
  19. VOLTAROL [Suspect]
     Active Substance: DICLOFENAC SODIUM
     Dosage: 100 DOSAGE FORM, ONCE A DAY
     Route: 065
  20. APIDRA [Concomitant]
     Active Substance: INSULIN GLULISINE
     Indication: Product used for unknown indication
     Dosage: UNK
     Route: 065
  21. COCODAMOL [Concomitant]
     Active Substance: ACETAMINOPHEN\CODEINE PHOSPHATE
     Indication: Product used for unknown indication
     Dosage: UNK
     Route: 065
  22. EZETIMIBE [Concomitant]
     Active Substance: EZETIMIBE
     Indication: Product used for unknown indication
     Dosage: UNK
     Route: 065
  23. RANITIDINE [Concomitant]
     Active Substance: RANITIDINE
     Indication: Product used for unknown indication
     Dosage: UNK
     Route: 065
  24. ZOPICLONE [Concomitant]
     Active Substance: ZOPICLONE
     Indication: Product used for unknown indication
     Dosage: UNK
     Route: 065
  25. INSULIN NOS [Concomitant]
     Active Substance: INSULIN NOS
     Indication: Diabetes mellitus
     Dosage: UNK
     Route: 065
  26. COCODAMOL [Concomitant]
     Active Substance: ACETAMINOPHEN\CODEINE PHOSPHATE
     Indication: Product used for unknown indication
     Dosage: UNK

REACTIONS (6)
  - Gait disturbance [Unknown]
  - Pain [Unknown]
  - Musculoskeletal stiffness [Unknown]
  - Drug dependence [Unknown]
  - Therapeutic response unexpected [Unknown]
  - Drug ineffective [Unknown]

NARRATIVE: CASE EVENT DATE: 20180201
